FAERS Safety Report 4825224-0 (Version None)
Quarter: 2005Q4

REPORT INFORMATION
  Report Type: 
  Country: None (occurrence: None)
  Receive Date: 20051109
  Receipt Date: 20051027
  Transmission Date: 20060501
  Serious: Yes (Other)
  Sender: FDA-Public Use
  Company Number: 205809

PATIENT
  Age: 43 Year
  Sex: Female
  Weight: 48 kg

DRUGS (8)
  1. RITUXAN [Suspect]
     Indication: B-CELL LYMPHOMA
     Dosage: 545.62 MG, SINGLE, INTRAVENOUS
     Route: 042
     Dates: start: 20020722, end: 20020722
  2. VINCRISTINE [Suspect]
     Indication: B-CELL LYMPHOMA
     Dosage: 0.465 MG, X4, INTRAVENOUS
     Route: 042
     Dates: start: 20020723, end: 20020726
  3. DOXORUBICIN HCL [Suspect]
     Indication: B-CELL LYMPHOMA
     Dosage: 11.64 MG, X4, INTRAVENOUS
     Route: 042
     Dates: start: 20020723, end: 20020726
  4. ETOPOSIDE [Suspect]
     Indication: B-CELL LYMPHOMA
     Dosage: 58.2 MG, X4, INTRAVENOUS
     Route: 042
     Dates: start: 20020723, end: 20020726
  5. CYCLOPHOSPHAMIDE [Suspect]
     Indication: B-CELL LYMPHOMA
     Dosage: 873 MG, SINGLE, INTRAVENOUS
     Route: 042
     Dates: start: 20020727, end: 20020727
  6. PREDNISONE [Suspect]
     Indication: B-CELL LYMPHOMA
     Dosage: 85 MG, X5, ORAL
     Route: 048
     Dates: start: 20020723, end: 20020727
  7. ACETAMINOPHEN [Concomitant]
  8. CHLORPHENIRAMINE MALEATE [Concomitant]

REACTIONS (7)
  - BLOOD LACTATE DEHYDROGENASE INCREASED [None]
  - HAEMOGLOBIN DECREASED [None]
  - NEUTROPENIA [None]
  - PERITONEAL PERFORATION [None]
  - PERITONITIS [None]
  - PLATELET COUNT DECREASED [None]
  - WHITE BLOOD CELL COUNT DECREASED [None]
